FAERS Safety Report 19065627 (Version 2)
Quarter: 2021Q2

REPORT INFORMATION
  Report Type: Spontaneous
  Country: US (occurrence: US)
  Receive Date: 20210327
  Receipt Date: 20210422
  Transmission Date: 20210717
  Serious: Yes (Other)
  Sender: FDA-Public Use
  Company Number: US-009507513-2103USA002861

PATIENT
  Age: 73 Year
  Sex: Female
  Weight: 64.85 kg

DRUGS (9)
  1. ZOFRAN [Concomitant]
     Active Substance: ONDANSETRON HYDROCHLORIDE
     Dosage: UNK
  2. KEPPRA [Concomitant]
     Active Substance: LEVETIRACETAM
     Dosage: UNK
  3. LOSARTAN POTASSIUM. [Concomitant]
     Active Substance: LOSARTAN POTASSIUM
  4. KEYTRUDA [Suspect]
     Active Substance: PEMBROLIZUMAB
     Indication: GASTRIC CANCER
     Dosage: 200 MILLIGRAM, CYCLICAL (2 CYCLES)
     Route: 042
     Dates: start: 20200430, end: 202005
  5. SINGULAIR [Concomitant]
     Active Substance: MONTELUKAST SODIUM
     Dosage: UNK
  6. SYNTHROID [Concomitant]
     Active Substance: LEVOTHYROXINE SODIUM
     Dosage: UNK
  7. KEYTRUDA [Suspect]
     Active Substance: PEMBROLIZUMAB
     Dosage: 400 MILLIGRAM, EVERY 6 WEEKS (EVERY 42 DAYS)
     Route: 042
     Dates: start: 202005
  8. LOVENOX [Concomitant]
     Active Substance: ENOXAPARIN SODIUM
     Dosage: UNK
  9. METOPROLOL. [Concomitant]
     Active Substance: METOPROLOL
     Dosage: UNK

REACTIONS (22)
  - Increased appetite [Recovered/Resolved]
  - Ocular icterus [Unknown]
  - Ill-defined disorder [Unknown]
  - Hiatus hernia [Unknown]
  - Intervertebral disc degeneration [Unknown]
  - Herpes zoster [Not Recovered/Not Resolved]
  - Interstitial lung disease [Unknown]
  - Cerebral microhaemorrhage [Unknown]
  - Deep vein thrombosis [Unknown]
  - Vomiting [Unknown]
  - Abdominal pain [Unknown]
  - Malignant neoplasm progression [Unknown]
  - Soft tissue mass [Unknown]
  - Gastritis [Not Recovered/Not Resolved]
  - Headache [Unknown]
  - Injection site granuloma [Unknown]
  - Haemangioma [Unknown]
  - Fatigue [Unknown]
  - Ophthalmic herpes zoster [Unknown]
  - Post herpetic neuralgia [Unknown]
  - Hypoaesthesia [Unknown]
  - Nausea [Unknown]

NARRATIVE: CASE EVENT DATE: 20200427
